FAERS Safety Report 9216379 (Version 3)
Quarter: 2013Q2

REPORT INFORMATION
  Report Type: Spontaneous
  Country: SE (occurrence: None)
  Receive Date: 20130403
  Receipt Date: 20130503
  Transmission Date: 20140414
  Serious: Yes (Other)
  Sender: FDA-Public Use
  Company Number: 2013063084

PATIENT
  Age: 71 Year
  Sex: Female

DRUGS (3)
  1. FRAGMIN [Suspect]
     Indication: THROMBOPHLEBITIS
     Route: 058
     Dates: start: 20130104, end: 20130108
  2. FRAGMIN [Suspect]
     Indication: VENOUS THROMBOSIS LIMB
     Route: 058
     Dates: start: 20130104, end: 20130108
  3. ALVEDON [Concomitant]

REACTIONS (12)
  - Polymyalgia rheumatica [None]
  - Musculoskeletal pain [None]
  - Neck pain [None]
  - Pain in extremity [None]
  - Hypoaesthesia [None]
  - Paraesthesia [None]
  - Dyspnoea [None]
  - Alanine aminotransferase increased [None]
  - Musculoskeletal stiffness [None]
  - Pain [None]
  - Groin pain [None]
  - Needle issue [None]
